FAERS Safety Report 8019949-6 (Version None)
Quarter: 2012Q1

REPORT INFORMATION
  Report Type: 
  Country: None (occurrence: None)
  Receive Date: 20120103
  Receipt Date: 20111222
  Transmission Date: 20120608
  Serious: Yes (Hospitalization)
  Sender: FDA-Public Use
  Company Number: US-PFIZER INC-2011310749

PATIENT
  Sex: Female
  Weight: 83.447 kg

DRUGS (31)
  1. BLINDED NO SUBJECT DRUG [Suspect]
     Indication: OSTEOARTHRITIS
     Dosage: HIGH DOSE, 3X/DAY
     Route: 048
     Dates: start: 20110826, end: 20110920
  2. BLINDED NO SUBJECT DRUG [Suspect]
     Indication: RHEUMATOID ARTHRITIS
  3. ALDACTONE [Suspect]
     Indication: OEDEMA
     Dosage: 25 MG, AS NEEDED
     Route: 048
     Dates: start: 20050101, end: 20110920
  4. LASIX [Suspect]
     Indication: OEDEMA
     Dosage: 40 MG, AS NEEDED
     Route: 048
     Dates: start: 20050101, end: 20110920
  5. MS CONTIN [Concomitant]
     Indication: FIBROMYALGIA
     Dosage: 60 MG, 4X/DAY
     Route: 048
     Dates: start: 20101019
  6. CELEXA [Concomitant]
     Indication: DEPRESSION
     Dosage: 20 MG, 1X/DAY
     Route: 048
     Dates: start: 20100310
  7. FLONASE [Concomitant]
     Indication: RHINITIS ALLERGIC
     Dosage: NS, INTRANASAL, 2X/DAY
     Dates: start: 20060101
  8. POTASSIUM CHLORIDE [Concomitant]
     Indication: SUPPLEMENTATION THERAPY
     Dosage: 20 MEQ, AS NEEDED
     Route: 048
     Dates: start: 20050101
  9. DILAUDID [Concomitant]
     Indication: PERIPHERAL VASCULAR DISORDER
     Dosage: 8 MG, Q 4 HOUR, AS NEEDED
     Route: 048
     Dates: start: 20090613
  10. MULTI-VITAMINS [Concomitant]
     Indication: SUPPLEMENTATION THERAPY
     Dosage: 1 TAB, 1X/DAY
     Route: 048
     Dates: start: 19800101
  11. TRAZODONE [Concomitant]
     Indication: INSOMNIA
     Dosage: 50 MG, QHS, AS NEEDED
     Route: 048
     Dates: start: 20100713
  12. IBUPROFEN [Suspect]
     Dosage: HIGH DOSE, 3X/DAY
     Route: 048
     Dates: start: 20110826, end: 20110920
  13. IBUPROFEN [Suspect]
     Indication: RHEUMATOID ARTHRITIS
  14. NAPROXEN [Suspect]
  15. NEXIUM [Concomitant]
     Indication: PROPHYLAXIS
     Dosage: 40 MG, 2X/DAY
     Route: 048
     Dates: start: 20080829, end: 20110920
  16. IMITREX [Concomitant]
     Indication: MIGRAINE
     Dosage: 100 MG, AS NEEDED
     Route: 048
     Dates: start: 19880101
  17. NAPROXEN [Suspect]
     Indication: OSTEOARTHRITIS
     Dosage: HIGH DOSE, 3X/DAY
     Route: 048
     Dates: start: 20110826, end: 20110920
  18. NAPROXEN [Suspect]
     Dosage: HIGH DOSE, 3X/DAY
     Route: 048
     Dates: start: 20110826, end: 20110920
  19. BLINDED PLACEBO [Suspect]
     Indication: OSTEOARTHRITIS
     Dosage: HIGH DOSE, 3X/DAY
     Route: 048
     Dates: start: 20110826, end: 20110920
  20. GLUCOPHAGE [Concomitant]
     Indication: TYPE 2 DIABETES MELLITUS
     Dosage: 500 MG, 2X/DAY
     Route: 048
     Dates: start: 20090612
  21. PROMETHAZINE HYDROCHLORIDE [Concomitant]
     Indication: NAUSEA
     Dosage: 25 MG, AS NEEDED
     Route: 048
     Dates: start: 20020101
  22. SOMA [Concomitant]
     Indication: MUSCLE SPASMS
     Dosage: 350 MG, 4X/DAY
     Route: 048
     Dates: start: 20060101
  23. CELECOXIB [Suspect]
     Indication: OSTEOARTHRITIS
     Dosage: HIGH DOSE, 3X/DAY
     Route: 048
     Dates: start: 20110826, end: 20110920
  24. IBUPROFEN [Suspect]
     Indication: OSTEOARTHRITIS
     Dosage: HIGH DOSE, 3X/DAY
     Route: 048
     Dates: start: 20110826, end: 20110920
  25. CELECOXIB [Suspect]
     Indication: RHEUMATOID ARTHRITIS
  26. NAPROXEN [Suspect]
     Indication: RHEUMATOID ARTHRITIS
  27. BLINDED PLACEBO [Suspect]
     Indication: RHEUMATOID ARTHRITIS
  28. REGLAN [Concomitant]
     Indication: GASTROOESOPHAGEAL REFLUX DISEASE
     Dosage: 10 MG, AS NEEDED
     Route: 048
     Dates: start: 20040101
  29. ALBUTEROL [Concomitant]
     Indication: CHRONIC OBSTRUCTIVE PULMONARY DISEASE
     Dosage: 90 UG, AS NEEDED, INHALER
     Route: 055
     Dates: start: 20060101
  30. IBUPROFEN [Suspect]
  31. LIDODERM [Concomitant]
     Indication: FIBROMYALGIA
     Dosage: 5% Q, 12 HOUR, AS NEEDED, PATCH
     Route: 062
     Dates: start: 20040101

REACTIONS (2)
  - DEHYDRATION [None]
  - GASTROENTERITIS [None]
